FAERS Safety Report 17461465 (Version 1)
Quarter: 2020Q1

REPORT INFORMATION
  Report Type: Spontaneous
  Country: US (occurrence: US)
  Receive Date: 20200226
  Receipt Date: 20200226
  Transmission Date: 20200409
  Serious: Yes (Disabling)
  Sender: FDA-Public Use
  Company Number: None

PATIENT
  Age: 56 Year
  Sex: Female

DRUGS (1)
  1. BEOVU [Suspect]
     Active Substance: BROLUCIZUMAB-DBLL
     Indication: NEOVASCULAR AGE-RELATED MACULAR DEGENERATION
     Dosage: ?          OTHER FREQUENCY:ONCE;OTHER ROUTE:INTRAVITREAL?
     Dates: start: 20200121, end: 20200121

REACTIONS (3)
  - Eye irritation [None]
  - Uveitis [None]
  - Retinal depigmentation [None]

NARRATIVE: CASE EVENT DATE: 20200121
